FAERS Safety Report 18740170 (Version 4)
Quarter: 2021Q2

REPORT INFORMATION
  Report Type: Spontaneous
  Country: US (occurrence: US)
  Receive Date: 20210114
  Receipt Date: 20210622
  Transmission Date: 20210717
  Serious: Yes (Other)
  Sender: FDA-Public Use
  Company Number: US-ROCHE-2747608

PATIENT
  Age: 59 Year
  Sex: Female
  Weight: 93 kg

DRUGS (4)
  1. ACTIVASE [Suspect]
     Active Substance: ALTEPLASE
  2. ACTIVASE [Suspect]
     Active Substance: ALTEPLASE
     Indication: VISUAL FIELD DEFECT
     Dosage: 750 + 8.4 MG
     Route: 042
     Dates: start: 20210108, end: 20210108
  3. ACTIVASE [Suspect]
     Active Substance: ALTEPLASE
     Indication: CEREBROVASCULAR ACCIDENT
     Dosage: LYOPHILIZED VIALS 100 MG,
     Route: 042
     Dates: start: 20210108, end: 20210108
  4. ACTIVASE [Suspect]
     Active Substance: ALTEPLASE

REACTIONS (4)
  - Inappropriate schedule of product administration [Unknown]
  - Off label use [Unknown]
  - No adverse event [Unknown]
  - Product quality issue [Unknown]

NARRATIVE: CASE EVENT DATE: 20210108
